FAERS Safety Report 7302649-5 (Version None)
Quarter: 2011Q1

REPORT INFORMATION
  Report Type: 
  Country: None (occurrence: None)
  Receive Date: 20110218
  Receipt Date: 20110216
  Transmission Date: 20110831
  Serious: Yes (Other)
  Sender: FDA-Public Use
  Company Number: JP-PFIZER INC-2011024357

PATIENT
  Age: 60 Year
  Sex: Male

DRUGS (6)
  1. SELARA [Suspect]
     Indication: HYPERTENSION
     Dosage: 50 MG, DAILY
     Route: 048
     Dates: start: 20101216, end: 20110125
  2. FLUITRAN [Concomitant]
     Indication: HYPERTENSION
     Dosage: UNK
     Route: 048
  3. ARTIST [Concomitant]
     Indication: HYPERTENSION
     Dosage: UNK
     Route: 048
  4. CARDENALIN [Concomitant]
     Indication: HYPERTENSION
     Dosage: UNK
     Route: 048
  5. OLMETEC [Concomitant]
     Indication: HYPERTENSION
     Dosage: UNK
     Route: 048
  6. BEZATOL [Concomitant]

REACTIONS (1)
  - SHOCK [None]
